FAERS Safety Report 20511357 (Version 2)
Quarter: 2022Q1

REPORT INFORMATION
  Report Type: Spontaneous
  Country: US (occurrence: US)
  Receive Date: 20220224
  Receipt Date: 20220228
  Transmission Date: 20220423
  Serious: No
  Sender: FDA-Public Use
  Company Number: US-NOVARTISTESTPH-NVSC2022US042376

PATIENT
  Sex: Female
  Weight: 85.261 kg

DRUGS (1)
  1. RYDAPT [Suspect]
     Active Substance: MIDOSTAURIN
     Indication: Leukaemia
     Dosage: 50 MG, BID
     Route: 048
     Dates: start: 201811, end: 202202

REACTIONS (2)
  - Asthenia [Unknown]
  - Weight increased [Unknown]
